FAERS Safety Report 9897600 (Version 1)
Quarter: 2014Q1

REPORT INFORMATION
  Report Type: Not Available
  Country: GB (occurrence: GB)
  Receive Date: 20140214
  Receipt Date: 20140214
  Transmission Date: 20141002
  Serious: Yes (Disabling)
  Sender: FDA-Public Use
  Company Number: GB-ASTELLAS-2014EU001183

PATIENT
  Age: 65 Year
  Sex: Female
  Weight: 92 kg

DRUGS (18)
  1. YM178 [Suspect]
     Dosage: UNK
     Route: 065
     Dates: start: 20140103
  2. ASPIRIN [Concomitant]
     Dosage: UNK
     Route: 065
     Dates: start: 20131011
  3. BENDROFLUMETHIAZIDE [Concomitant]
     Dosage: UNK
     Route: 065
     Dates: start: 20131011
  4. CANDESARTAN [Concomitant]
     Dosage: UNK
     Route: 065
     Dates: start: 20131011
  5. CODEINE PHOSPHATE [Concomitant]
     Dosage: UNK
     Route: 065
     Dates: start: 20131216, end: 20131223
  6. CODEINE PHOSPHATE [Concomitant]
     Dosage: UNK
     Route: 065
     Dates: start: 20131017, end: 20131116
  7. CODEINE PHOSPHATE [Concomitant]
     Dosage: UNK
     Route: 065
     Dates: start: 20131126, end: 20131203
  8. CO-DYDRAMOL [Concomitant]
     Dosage: UNK
     Route: 065
     Dates: start: 20131011
  9. LAMOTRIGINE [Concomitant]
     Dosage: UNK
     Route: 065
     Dates: start: 20131011
  10. LORATADINE [Concomitant]
     Dosage: UNK
     Route: 065
     Dates: start: 20131115, end: 20131213
  11. LORATADINE [Concomitant]
     Dosage: UNK
     Route: 065
     Dates: start: 20131011, end: 20131108
  12. NAPROXEN [Concomitant]
     Dosage: UNK
     Route: 065
     Dates: start: 20131216, end: 20140113
  13. OMEPRAZOLE [Concomitant]
     Dosage: UNK
     Route: 065
     Dates: start: 20131216, end: 20140113
  14. SOLIFENACIN SUCCINATE [Concomitant]
     Dosage: UNK
     Route: 065
     Dates: start: 20131011, end: 20140112
  15. SULPIRIDE [Concomitant]
     Dosage: UNK
     Route: 065
     Dates: start: 20131024, end: 20131213
  16. TRAZODONE [Concomitant]
     Dosage: UNK
     Route: 065
     Dates: start: 20131011
  17. TRIMETHOPRIM [Concomitant]
     Dosage: UNK
     Route: 065
     Dates: start: 20131011
  18. ZOLPIDEM [Concomitant]
     Dosage: UNK
     Route: 065
     Dates: start: 20131011

REACTIONS (5)
  - Vision blurred [Not Recovered/Not Resolved]
  - Diplopia [Unknown]
  - Headache [Not Recovered/Not Resolved]
  - Salivary hypersecretion [Not Recovered/Not Resolved]
  - Nausea [Not Recovered/Not Resolved]
